FAERS Safety Report 21403062 (Version 4)
Quarter: 2023Q2

REPORT INFORMATION
  Report Type: Spontaneous
  Country: US (occurrence: US)
  Receive Date: 20221003
  Receipt Date: 20230620
  Transmission Date: 20230721
  Serious: Yes (Other)
  Sender: FDA-Public Use
  Company Number: US-BRISTOL-MYERS SQUIBB COMPANY-2022-114419

PATIENT
  Age: 57 Year
  Sex: Male

DRUGS (3)
  1. REVLIMID [Suspect]
     Active Substance: LENALIDOMIDE
     Indication: Plasma cell myeloma
     Dosage: TAKE 1 CAPSULE BY MOUTH DAILY ON DAYS 1-14 OF EACH 21 DAY CYCLE.TAKE WHOLE WITH WATER AT THE SAME TI
     Route: 048
     Dates: start: 20220915
  2. REVLIMID [Suspect]
     Active Substance: LENALIDOMIDE
     Dosage: TAKE 1 WHOLE CAPSULE BY MOUTH
     Route: 048
  3. REVLIMID [Suspect]
     Active Substance: LENALIDOMIDE
     Dosage: TAKE 1 CAPSULE (10 MG TOTAL) BY MOUTH
     Route: 048
     Dates: start: 20230607

REACTIONS (11)
  - Fatigue [Unknown]
  - Constipation [Unknown]
  - Off label use [Unknown]
  - Influenza [Unknown]
  - Neuralgia [Unknown]
  - Asthenia [Unknown]
  - Somnolence [Unknown]
  - Gastritis [Recovered/Resolved]
  - Thrombosis [Unknown]
  - Decreased appetite [Unknown]
  - Spinal disorder [Unknown]

NARRATIVE: CASE EVENT DATE: 20200101
